FAERS Safety Report 8823346 (Version 1)
Quarter: 2012Q4

REPORT INFORMATION
  Report Type: 
  Country: US (occurrence: US)
  Receive Date: 20121003
  Receipt Date: 20121003
  Transmission Date: 20130627
  Serious: No
  Sender: FDA-Public Use
  Company Number: US-009507513-1209USA011972

PATIENT
  Sex: Female

DRUGS (2)
  1. MIRALAX [Suspect]
     Indication: PRODUCT USED FOR UNKNOWN INDICATION
     Dosage: UNK, hs
     Route: 048
     Dates: start: 20120910
  2. MIRALAX [Suspect]
     Dosage: UNK, Once
     Route: 048
     Dates: start: 20120911

REACTIONS (2)
  - Expired drug administered [Unknown]
  - Overdose [Unknown]
